FAERS Safety Report 4296059-5 (Version None)
Quarter: 2004Q1

REPORT INFORMATION
  Report Type: 
  Country: None (occurrence: None)
  Receive Date: 20040212
  Receipt Date: 20040202
  Transmission Date: 20041129
  Serious: Yes (Hospitalization)
  Sender: FDA-Public Use
  Company Number: 2004197283FR

PATIENT
  Age: 66 Year
  Sex: Female

DRUGS (2)
  1. SOLU-MEDROL [Suspect]
     Dosage: 20 MG, TID, ORAL
     Route: 048
     Dates: start: 20010420, end: 20010423
  2. ZIRTEC [Concomitant]

REACTIONS (2)
  - DELIRIUM [None]
  - PERSECUTORY DELUSION [None]
